FAERS Safety Report 13685140 (Version 2)
Quarter: 2018Q1

REPORT INFORMATION
  Report Type: Report from Study
  Country: BR (occurrence: BR)
  Receive Date: 20170623
  Receipt Date: 20180202
  Transmission Date: 20180508
  Serious: Yes (Other)
  Sender: FDA-Public Use
  Company Number: PHHY2017BR092920

PATIENT
  Age: 68 Year
  Sex: Male
  Weight: 46.4 kg

DRUGS (7)
  1. PROLOPA [Concomitant]
     Active Substance: BENSERAZIDE\LEVODOPA
     Indication: PARKINSON^S DISEASE
     Dosage: 1 DF, QN (10 YEARS AGO)
     Route: 048
  2. ACLASTA [Suspect]
     Active Substance: ZOLEDRONIC ACID
     Indication: OSTEOPOROSIS
     Dosage: 1 DF (5 MG/ 100 ML), Q12MO
     Route: 042
  3. LEVODOPA [Concomitant]
     Active Substance: LEVODOPA
     Indication: PARKINSON^S DISEASE
     Dosage: 3 DF, QD (10 YEARS AGO)
     Route: 048
  4. ACLASTA [Suspect]
     Active Substance: ZOLEDRONIC ACID
     Dosage: 1 DF (5 MG/ 100 ML), Q12MO
     Route: 042
     Dates: start: 20170613
  5. AZILECT [Concomitant]
     Active Substance: RASAGILINE MESYLATE
     Indication: PARKINSON^S DISEASE
     Dosage: 1 DF, QD (2 MONTHS AGO)
     Route: 048
  6. FLORINEFE [Concomitant]
     Indication: HYPOTENSION
     Dosage: 1 DF, QD (1 MONTH AGO)
     Route: 048
  7. NEUPRO [Concomitant]
     Active Substance: ROTIGOTINE
     Indication: PARKINSON^S DISEASE
     Dosage: 1 DF, QD (2 MONTHS AGO)
     Route: 062

REACTIONS (4)
  - Speech disorder [Unknown]
  - Hypotension [Not Recovered/Not Resolved]
  - Pyrexia [Recovering/Resolving]
  - Somnolence [Unknown]

NARRATIVE: CASE EVENT DATE: 20170613
